FAERS Safety Report 12782238 (Version 1)
Quarter: 2016Q3

REPORT INFORMATION
  Report Type: Spontaneous
  Country: US (occurrence: US)
  Receive Date: 20160927
  Receipt Date: 20160927
  Transmission Date: 20161109
  Serious: Yes (Other)
  Sender: FDA-Public Use
  Company Number: US-BEH-200813475

PATIENT
  Age: 32 Year
  Sex: Male
  Weight: 142 kg

DRUGS (1)
  1. VIVAGLOBIN [Suspect]
     Active Substance: HUMAN IMMUNOGLOBULIN G
     Route: 058
     Dates: start: 200802

REACTIONS (4)
  - Micturition disorder [Unknown]
  - Rectal haemorrhage [Recovered/Resolved]
  - Proctitis [Recovered/Resolved]
  - Back pain [Unknown]

NARRATIVE: CASE EVENT DATE: 200804
